FAERS Safety Report 20224574 (Version 2)
Quarter: 2022Q3

REPORT INFORMATION
  Report Type: Spontaneous
  Country: JP (occurrence: JP)
  Receive Date: 20211223
  Receipt Date: 20220816
  Transmission Date: 20221027
  Serious: Yes (Hospitalization)
  Sender: FDA-Public Use
  Company Number: JP-ELI_LILLY_AND_COMPANY-JP202112010285

PATIENT
  Age: 23 Year
  Sex: Female

DRUGS (9)
  1. ADCIRCA [Suspect]
     Active Substance: TADALAFIL
     Indication: Pulmonary arterial hypertension
     Dosage: 5 MG, DAILY
     Route: 048
  2. ADCIRCA [Suspect]
     Active Substance: TADALAFIL
     Dosage: 10 MG, DAILY
     Route: 048
  3. ADCIRCA [Suspect]
     Active Substance: TADALAFIL
     Dosage: 40 MG, DAILY
     Route: 048
  4. BERAPROST SODIUM [Suspect]
     Active Substance: BERAPROST SODIUM
     Indication: Pulmonary arterial hypertension
     Dosage: UNK UNK, UNKNOWN
     Route: 065
  5. HYDROXYCHLOROQUINE SULFATE [Suspect]
     Active Substance: HYDROXYCHLOROQUINE SULFATE
     Indication: Product used for unknown indication
     Dosage: 20 MG, DAILY
     Route: 065
  6. HYDROXYCHLOROQUINE SULFATE [Suspect]
     Active Substance: HYDROXYCHLOROQUINE SULFATE
     Dosage: 20 MG, QOD
     Route: 065
  7. AMBRISENTAN [Concomitant]
     Active Substance: AMBRISENTAN
     Indication: Pulmonary arterial hypertension
  8. PREDNISOLONE [Concomitant]
     Active Substance: PREDNISOLONE
     Indication: Systemic lupus erythematosus
     Dosage: 1 MG, UNKNOWN
     Route: 065
  9. PREDNISOLONE [Concomitant]
     Active Substance: PREDNISOLONE
     Dosage: 5 MG
     Route: 065

REACTIONS (23)
  - Gestational hypertension [Unknown]
  - Maternal exposure during pregnancy [Unknown]
  - Morning sickness [Unknown]
  - Raynaud^s phenomenon [Unknown]
  - Erythema [Unknown]
  - Erythema [Unknown]
  - Systemic lupus erythematosus [Unknown]
  - DNA antibody positive [Recovering/Resolving]
  - Faeces soft [Unknown]
  - Pulmonary arterial pressure abnormal [Unknown]
  - Pulmonary hypertension [Unknown]
  - Acne [Unknown]
  - Blood albumin decreased [Unknown]
  - Raynaud^s phenomenon [Unknown]
  - Raynaud^s phenomenon [Unknown]
  - Erythema [Unknown]
  - Rash [Unknown]
  - Malaise [Unknown]
  - Nasopharyngitis [Unknown]
  - Headache [Unknown]
  - Headache [Recovered/Resolved]
  - Abdominal pain lower [Unknown]
  - Dyspnoea [Unknown]

NARRATIVE: CASE EVENT DATE: 20210501
